FAERS Safety Report 13006008 (Version 2)
Quarter: 2016Q4

REPORT INFORMATION
  Report Type: Spontaneous
  Country: JP (occurrence: JP)
  Receive Date: 20161207
  Receipt Date: 20161216
  Transmission Date: 20170207
  Serious: Yes (Death, Hospitalization)
  Sender: FDA-Public Use
  Company Number: JP-VIFOR (INTERNATIONAL) INC.-VIT-2016-08349

PATIENT
  Age: 76 Year
  Sex: Female
  Weight: 44 kg

DRUGS (3)
  1. WARFARIN [Suspect]
     Active Substance: WARFARIN
     Indication: CORONARY ARTERY DISEASE
     Route: 048
     Dates: end: 20160203
  2. MIRCERA [Suspect]
     Active Substance: METHOXY POLYETHYLENE GLYCOL-EPOETIN BETA
     Indication: NEPHROGENIC ANAEMIA
     Route: 042
     Dates: start: 20160111, end: 20160125
  3. BAYASPIRIN [Suspect]
     Active Substance: ASPIRIN
     Indication: AORTIC VALVE REPLACEMENT
     Route: 048
     Dates: end: 20160203

REACTIONS (5)
  - Anaemia [Fatal]
  - Cardiac arrest [Fatal]
  - Faeces discoloured [Fatal]
  - Duodenal ulcer haemorrhage [Fatal]
  - Asthenia [Fatal]

NARRATIVE: CASE EVENT DATE: 20160203
